FAERS Safety Report 11874698 (Version 1)
Quarter: 2015Q4

REPORT INFORMATION
  Report Type: Spontaneous
  Country: US (occurrence: None)
  Receive Date: 20151228
  Receipt Date: 20151228
  Transmission Date: 20160305
  Serious: Yes (Hospitalization)
  Sender: FDA-Public Use
  Company Number: None

PATIENT
  Age: 47 Year
  Sex: Male
  Weight: 136.08 kg

DRUGS (39)
  1. GABAPENTIN 300 AMNEAL [Suspect]
     Active Substance: GABAPENTIN
     Indication: SPINAL CORD INJURY
     Route: 048
     Dates: start: 20110416, end: 20151225
  2. ACIPHEX [Concomitant]
     Active Substance: RABEPRAZOLE SODIUM
  3. COLCRYS [Concomitant]
     Active Substance: COLCHICINE
  4. METOPROLOL [Concomitant]
     Active Substance: METOPROLOL
  5. DIABETIC SOCKS [Concomitant]
  6. ADVIL [Concomitant]
     Active Substance: IBUPROFEN
  7. GABAPENTIN 300 AMNEAL [Suspect]
     Active Substance: GABAPENTIN
     Indication: NEUROPATHY PERIPHERAL
     Route: 048
     Dates: start: 20110416, end: 20151225
  8. FLUOXETINE [Concomitant]
     Active Substance: FLUOXETINE HYDROCHLORIDE
  9. SPIRIV A VENTOLIN HFA [Concomitant]
  10. ASPIRIN. [Concomitant]
     Active Substance: ASPIRIN
  11. GABAPENTIN. [Concomitant]
     Active Substance: GABAPENTIN
  12. NALTREXONE [Concomitant]
     Active Substance: NALTREXONE
  13. HYDROCHLOROTHIAZIDE. [Concomitant]
     Active Substance: HYDROCHLOROTHIAZIDE
  14. TYLENOL [Concomitant]
     Active Substance: ACETAMINOPHEN
  15. SUPER B COMPLEX [Concomitant]
     Active Substance: CYANOCOBALAMIN\DEXPANTHENOL\NIACINAMIDE\PYRIDOXINE HYDROCHLORIDE\RIBOFLAVIN 5^-PHOSPHATE SODIUM\THIAMINE HYDROCHLORIDE\VITAMIN B COMPLEX
  16. POTASSIUM GLUCONATE [Concomitant]
     Active Substance: POTASSIUM GLUCONATE
  17. MELOXICAM. [Concomitant]
     Active Substance: MELOXICAM
  18. LIPITOR [Concomitant]
     Active Substance: ATORVASTATIN CALCIUM
  19. WALKER [Concomitant]
  20. SWISSE LIVER DETOX [Concomitant]
  21. OXCARBAZEPINE. [Concomitant]
     Active Substance: OXCARBAZEPINE
  22. BACK BRACE [Concomitant]
  23. NEBULIZER [Concomitant]
     Active Substance: DEVICE
  24. NAPROXEN. [Concomitant]
     Active Substance: NAPROXEN
  25. EXCEDRIN [Concomitant]
     Active Substance: ACETAMINOPHEN\ASPIRIN\CAFFEINE
  26. MAGNESIUM [Concomitant]
     Active Substance: MAGNESIUM
  27. ZOLPIDEM [Concomitant]
     Active Substance: ZOLPIDEM\ZOLPIDEM TARTRATE
  28. LAMOTRIGINE. [Concomitant]
     Active Substance: LAMOTRIGINE
  29. DULERA [Concomitant]
     Active Substance: FORMOTEROL FUMARATE DIHYDRATE\MOMETASONE FUROATE
  30. MULTI VITAMIN [Concomitant]
     Active Substance: VITAMINS
  31. CALCIUM [Concomitant]
     Active Substance: CALCIUM
  32. IRON [Concomitant]
     Active Substance: IRON
  33. VITAMIN C [Concomitant]
     Active Substance: ASCORBIC ACID
  34. GARLIC. [Concomitant]
     Active Substance: GARLIC
  35. LISINOPRIL. [Concomitant]
     Active Substance: LISINOPRIL
  36. HYDROXYZINE PAM [Concomitant]
  37. LEVLBUTEROL HCL [Concomitant]
  38. FOLIC ACID. [Concomitant]
     Active Substance: FOLIC ACID
  39. D-3 [Concomitant]
     Active Substance: CHOLECALCIFEROL

REACTIONS (2)
  - Aggression [None]
  - Alcohol use [None]

NARRATIVE: CASE EVENT DATE: 20151225
